FAERS Safety Report 5021205-5 (Version None)
Quarter: 2006Q2

REPORT INFORMATION
  Report Type: 
  Country: None (occurrence: None)
  Receive Date: 20060605
  Receipt Date: 20060523
  Transmission Date: 20061013
  Serious: Yes (Hospitalization, Other)
  Sender: FDA-Public Use
  Company Number: 2006067810

PATIENT
  Age: 64 Year
  Sex: Male
  Weight: 72.5755 kg

DRUGS (1)
  1. BEXTRA [Suspect]
     Indication: MONARTHRITIS
     Dosage: 20 MG (20MG, 1 IN 1 D);
     Dates: start: 20041112, end: 20041231

REACTIONS (15)
  - AMNESIA [None]
  - ATRIAL FIBRILLATION [None]
  - BLOOD CHOLESTEROL INCREASED [None]
  - CEREBRAL DISORDER [None]
  - CEREBROVASCULAR ACCIDENT [None]
  - DEPRESSION [None]
  - FRUSTRATION [None]
  - HAEMORRHAGE [None]
  - HYPERTENSION [None]
  - IMPAIRED DRIVING ABILITY [None]
  - SELF ESTEEM DECREASED [None]
  - SEXUAL DYSFUNCTION [None]
  - THINKING ABNORMAL [None]
  - THROMBOSIS [None]
  - VISUAL FIELD DEFECT [None]
